FAERS Safety Report 8641361 (Version 2)
Quarter: 2012Q4

REPORT INFORMATION
  Report Type: Spontaneous
  Country: UG (occurrence: None)
  Receive Date: 20120618
  Receipt Date: 20120821
  Transmission Date: 20130627
  Serious: Yes (Death)
  Sender: FDA-Public Use
  Company Number: ADR-UNK-061

PATIENT
  Age: 0 Year
  Sex: Female
  Weight: 1.74 kg

DRUGS (2)
  1. LAMIVUDINE [Suspect]
     Indication: ACQUIRED IMMUNODEFICIENCY SYNDROME
     Dosage: 2 TAB/CAPS/ORAL
     Route: 048
     Dates: start: 20110221
  2. LOPINAVIR+RITONAVIR (KALETRA, ALUVIA, LPV/R)) [Concomitant]

REACTIONS (2)
  - Stillbirth [None]
  - Maternal drugs affecting foetus [None]
